FAERS Safety Report 6676641-8 (Version None)
Quarter: 2010Q2

REPORT INFORMATION
  Report Type: 
  Country: None (occurrence: None)
  Receive Date: 20100412
  Receipt Date: 20100401
  Transmission Date: 20101027
  Serious: Yes (Other)
  Sender: FDA-Public Use
  Company Number: PHHY2010DE13718

PATIENT
  Sex: Female
  Weight: 90 kg

DRUGS (5)
  1. LEPONEX [Suspect]
     Indication: SCHIZOPHRENIA, PARANOID TYPE
     Dosage: 800 MG/DAY
     Route: 048
     Dates: start: 20090301
  2. LEPONEX [Suspect]
     Dosage: 600 MG/DAY
     Route: 048
  3. LEPONEX [Suspect]
     Dosage: 800 MG/DAY
     Route: 048
  4. RISPERDAL [Concomitant]
  5. HALDOL [Concomitant]

REACTIONS (3)
  - DENTAL CARIES [None]
  - GINGIVAL RECESSION [None]
  - GINGIVITIS [None]
